FAERS Safety Report 10923407 (Version 5)
Quarter: 2015Q2

REPORT INFORMATION
  Report Type: Other
  Country: GB (occurrence: GB)
  Receive Date: 20150318
  Receipt Date: 20150423
  Transmission Date: 20150821
  Serious: Yes (Other)
  Sender: FDA-Public Use
  Company Number: GB-GLENMARK GENERICS INC.-2015GMK014696

PATIENT

DRUGS (16)
  1. ROPINIROLE. [Suspect]
     Active Substance: ROPINIROLE
     Dosage: 24 MG, OD
     Dates: start: 200909
  2. PRAMIPEXOLE [Suspect]
     Active Substance: PRAMIPEXOLE
     Indication: PRODUCT USED FOR UNKNOWN INDICATION
     Dosage: UNK
     Dates: start: 2002, end: 2007
  3. CO-CARELDOPA [Suspect]
     Active Substance: CARBIDOPA\LEVODOPA
     Indication: PARKINSON^S DISEASE
     Dosage: UNK, FIVE TIMES A DAY
     Dates: start: 2000, end: 200909
  4. LEVODOPA [Suspect]
     Active Substance: LEVODOPA
     Indication: PARKINSON^S DISEASE
     Dosage: UNK
     Dates: start: 2002, end: 2007
  5. ORPHENADRINE [Suspect]
     Active Substance: ORPHENADRINE
     Indication: PRODUCT USED FOR UNKNOWN INDICATION
     Dosage: 50 MG, TID
     Dates: start: 201007
  6. ROPINIROLE. [Suspect]
     Active Substance: ROPINIROLE
     Indication: PRODUCT USED FOR UNKNOWN INDICATION
     Dosage: UNK
     Dates: start: 2002, end: 2007
  7. AMANTADINE [Suspect]
     Active Substance: AMANTADINE
     Dosage: 50 MG, BID
     Dates: start: 201007
  8. BENSERAZIDE [Suspect]
     Active Substance: BENSERAZIDE
     Indication: PRODUCT USED FOR UNKNOWN INDICATION
     Dosage: UNK
     Dates: start: 2002, end: 2007
  9. CO-CARELDOPA [Suspect]
     Active Substance: CARBIDOPA\LEVODOPA
     Dosage: 62.5 MG, TWELVE TIMES A DAY
     Dates: start: 200909, end: 201007
  10. APOMORPHINE [Suspect]
     Active Substance: APOMORPHINE
     Indication: PRODUCT USED FOR UNKNOWN INDICATION
     Dosage: UNK
     Route: 058
     Dates: start: 2007, end: 2007
  11. CO-CARELDOPA [Suspect]
     Active Substance: CARBIDOPA\LEVODOPA
     Dosage: 62.5 MG, EVERY 2 HOURS
     Dates: start: 201007
  12. ENTACAPONE. [Suspect]
     Active Substance: ENTACAPONE
     Indication: PRODUCT USED FOR UNKNOWN INDICATION
     Dosage: UNK
     Dates: start: 2002, end: 200909
  13. SELEGILINE [Suspect]
     Active Substance: SELEGILINE
     Indication: PARKINSON^S DISEASE
     Dosage: 10 MG, OD
     Dates: start: 1995
  14. ROTIGOTINE [Concomitant]
     Active Substance: ROTIGOTINE
     Indication: PRODUCT USED FOR UNKNOWN INDICATION
     Dosage: UNK
     Dates: start: 2007
  15. AMANTADINE [Suspect]
     Active Substance: AMANTADINE
     Indication: PRODUCT USED FOR UNKNOWN INDICATION
     Dosage: UNK
     Dates: start: 2002, end: 2007
  16. AMANTADINE [Suspect]
     Active Substance: AMANTADINE
     Dosage: 100 MG, BID
     Dates: start: 200811

REACTIONS (16)
  - Feeling abnormal [Unknown]
  - Haemorrhage [Recovered/Resolved]
  - Facial paresis [Unknown]
  - Hyperhidrosis [Recovered/Resolved]
  - Muscular weakness [Unknown]
  - Headache [Recovered/Resolved]
  - Balance disorder [Unknown]
  - Skin mass [Recovered/Resolved]
  - Memory impairment [Recovering/Resolving]
  - Tremor [Recovered/Resolved]
  - On and off phenomenon [Unknown]
  - Depression [Recovering/Resolving]
  - Dyskinesia [Recovered/Resolved]
  - Transient ischaemic attack [Unknown]
  - Decreased appetite [Recovered/Resolved]
  - Recall phenomenon [Recovering/Resolving]

NARRATIVE: CASE EVENT DATE: 2002
